FAERS Safety Report 6150534-7 (Version None)
Quarter: 2009Q2

REPORT INFORMATION
  Report Type: 
  Country: None (occurrence: None)
  Receive Date: 20090409
  Receipt Date: 20090402
  Transmission Date: 20091009
  Serious: Yes (Other)
  Sender: FDA-Public Use
  Company Number: US-ALLERGAN-0901046US

PATIENT
  Sex: Male
  Weight: 77.098 kg

DRUGS (6)
  1. RESTASIS [Suspect]
     Indication: DRY EYE
     Dosage: 1 GTT, Q12H
     Route: 047
     Dates: start: 20080624, end: 20081215
  2. RESTASIS [Suspect]
     Indication: POSTOPERATIVE CARE
  3. RESTASIS [Suspect]
     Indication: CORNEAL EROSION
  4. VITAMINS NOS [Concomitant]
  5. LOTEMAX [Concomitant]
     Indication: DRY EYE
     Dosage: 1 GTT, TID/QID
  6. LOTEMAX [Concomitant]
     Indication: CORNEAL EROSION

REACTIONS (2)
  - ERYTHEMA DYSCHROMICUM PERSTANS [None]
  - LICHEN PLANUS [None]
